FAERS Safety Report 24973037 (Version 1)
Quarter: 2025Q1

REPORT INFORMATION
  Report Type: Other
  Country: CN (occurrence: CN)
  Receive Date: 20250216
  Receipt Date: 20250216
  Transmission Date: 20250409
  Serious: Yes (Hospitalization)
  Sender: DEXCEL
  Company Number: CN-DEXPHARM-2025-0898

PATIENT
  Age: 61 Year
  Sex: Female

DRUGS (10)
  1. DICLOFENAC [Suspect]
     Active Substance: DICLOFENAC
     Route: 061
  2. VORICONAZOLE [Suspect]
     Active Substance: VORICONAZOLE
     Route: 057
     Dates: start: 20231113
  3. VORICONAZOLE [Suspect]
     Active Substance: VORICONAZOLE
     Route: 057
     Dates: start: 20231116
  4. VORICONAZOLE [Suspect]
     Active Substance: VORICONAZOLE
     Route: 057
     Dates: start: 20231123
  5. NATAMYCIN [Suspect]
     Active Substance: NATAMYCIN
  6. ITRACONAZOLE [Suspect]
     Active Substance: ITRACONAZOLE
     Route: 048
  7. VORICONAZOLE [Suspect]
     Active Substance: VORICONAZOLE
  8. GATIFLOXACIN [Suspect]
     Active Substance: GATIFLOXACIN
  9. PREDNISOLONE ACETATE [Suspect]
     Active Substance: PREDNISOLONE ACETATE
  10. TACROLIMUS [Suspect]
     Active Substance: TACROLIMUS

REACTIONS (1)
  - Corneal perforation [Recovered/Resolved]
